FAERS Safety Report 9927093 (Version 1)
Quarter: 2014Q1

REPORT INFORMATION
  Report Type: Spontaneous
  Country: US (occurrence: US)
  Receive Date: 20140226
  Receipt Date: 20140226
  Transmission Date: 20141002
  Serious: No
  Sender: FDA-Public Use
  Company Number: US-AMGEN-USASP2014001479

PATIENT
  Age: 60 Year
  Sex: Male

DRUGS (2)
  1. ENBREL [Suspect]
     Indication: PSORIATIC ARTHROPATHY
     Dosage: UNK MG, QWK
     Route: 065
     Dates: start: 20041001, end: 2007
  2. METHOTREXATE [Concomitant]
     Dosage: 6 TABS (2.5MG) , QWK
     Route: 048
     Dates: start: 20131230

REACTIONS (4)
  - Liver function test abnormal [Recovered/Resolved]
  - Skin plaque [Not Recovered/Not Resolved]
  - Pruritus generalised [Not Recovered/Not Resolved]
  - Local swelling [Recovered/Resolved]
